FAERS Safety Report 15975357 (Version 1)
Quarter: 2019Q1

REPORT INFORMATION
  Report Type: Spontaneous
  Country: JP (occurrence: JP)
  Receive Date: 20190218
  Receipt Date: 20190218
  Transmission Date: 20190418
  Serious: Yes (Death)
  Sender: FDA-Public Use
  Company Number: JP-ROCHE-2268047

PATIENT
  Age: 63 Year

DRUGS (1)
  1. TECENTRIQ [Suspect]
     Active Substance: ATEZOLIZUMAB
     Indication: NON-SMALL CELL LUNG CANCER
     Dosage: START DATE: 25/JAN/2019
     Route: 041
     Dates: end: 20190125

REACTIONS (2)
  - Cardiac failure [Fatal]
  - Rash [Unknown]

NARRATIVE: CASE EVENT DATE: 2019
